FAERS Safety Report 4399552-X (Version None)
Quarter: 2004Q3

REPORT INFORMATION
  Report Type: 
  Country: None (occurrence: None)
  Receive Date: 20040716
  Receipt Date: 20040705
  Transmission Date: 20050211
  Serious: Yes (Hospitalization)
  Sender: FDA-Public Use
  Company Number: JP-GLAXOSMITHKLINE-B0338379A

PATIENT
  Age: 2 Year
  Sex: Female

DRUGS (2)
  1. ALKERAN [Suspect]
     Indication: BONE MARROW CONDITIONING REGIMEN
     Dosage: 300MGM2 PER DAY
     Route: 042
  2. THIOTEPA [Concomitant]
     Indication: STEM CELL TRANSPLANT
     Dosage: 1000MGM2 PER DAY
     Route: 065

REACTIONS (1)
  - MUCOUS MEMBRANE DISORDER [None]
